FAERS Safety Report 18784055 (Version 1)
Quarter: 2021Q1

REPORT INFORMATION
  Report Type: Report from Study
  Country: US (occurrence: US)
  Receive Date: 20210125
  Receipt Date: 20210125
  Transmission Date: 20210419
  Serious: Yes (Hospitalization, Other)
  Sender: FDA-Public Use
  Company Number: US-SA-2021SA018204

PATIENT
  Sex: Male

DRUGS (2)
  1. AGALSIDASE BETA [Suspect]
     Active Substance: AGALSIDASE BETA
     Indication: FABRY^S DISEASE
     Dosage: 1 MG/KG, QOW
  2. CANNABIDIOL [Concomitant]
     Active Substance: CANNABIDIOL
     Indication: PAIN

REACTIONS (4)
  - Dyspnoea [Unknown]
  - Seizure [Unknown]
  - Chest discomfort [Unknown]
  - Chills [Unknown]
